FAERS Safety Report 6724679-4 (Version None)
Quarter: 2010Q2

REPORT INFORMATION
  Report Type: 
  Country: None (occurrence: None)
  Receive Date: 20100511
  Receipt Date: 20100503
  Transmission Date: 20101027
  Serious: Yes (Hospitalization, Other)
  Sender: FDA-Public Use
  Company Number: AXC-2010-000123

PATIENT
  Age: 37 Year
  Sex: Male
  Weight: 142.4 kg

DRUGS (10)
  1. CARAFATE [Suspect]
     Indication: DRUG USE FOR UNKNOWN INDICATION
     Dosage: 1MG, QID,
  2. DICYCLOMINE HCL [Suspect]
     Indication: DRUG USE FOR UNKNOWN INDICATION
     Dosage: 10 MG, BID
  3. GEODON [Suspect]
     Indication: BIPOLAR DISORDER
     Dosage: 40 MG, QD, ORAL
     Route: 048
     Dates: start: 20091223
  4. LITHIUM CARBONATE [Concomitant]
  5. AMBIEN [Concomitant]
  6. CITALOPRAM HYDROBROMIDE [Concomitant]
  7. LORAZEPAM [Concomitant]
  8. NEXUM (ESOMEPRAZOLE MAGNESIUM) [Concomitant]
  9. SYNTHROID [Concomitant]
  10. GLUCOPHAGE [Concomitant]

REACTIONS (5)
  - ANXIETY [None]
  - CHEST PAIN [None]
  - CHOLELITHIASIS [None]
  - CONDITION AGGRAVATED [None]
  - WEIGHT DECREASED [None]
